FAERS Safety Report 4834536-6 (Version None)
Quarter: 2005Q4

REPORT INFORMATION
  Report Type: 
  Country: None (occurrence: None)
  Receive Date: 20051122
  Receipt Date: 20050215
  Transmission Date: 20060501
  Serious: Yes (Other)
  Sender: FDA-Public Use
  Company Number: US-BRISTOL-MYERS SQUIBB COMPANY-12862983

PATIENT
  Age: 51 Year
  Sex: Male

DRUGS (2)
  1. PRAVACHOL [Suspect]
     Indication: HYPERLIPIDAEMIA
     Route: 048
     Dates: start: 20031121, end: 20041210
  2. UNIRETIC [Concomitant]
     Dosage: DOSAGE FORM = 15/25 DAILY

REACTIONS (1)
  - RHABDOMYOLYSIS [None]
